FAERS Safety Report 9266702 (Version 1)
Quarter: 2013Q2

REPORT INFORMATION
  Report Type: Spontaneous
  Country: US (occurrence: US)
  Receive Date: 20130502
  Receipt Date: 20130502
  Transmission Date: 20140414
  Serious: Yes (Other)
  Sender: FDA-Public Use
  Company Number: US-BAYER-2013-053084

PATIENT
  Age: 46 Year
  Sex: Female

DRUGS (9)
  1. GIANVI [Suspect]
  2. BEYAZ [Suspect]
  3. YAZ [Suspect]
     Indication: DYSMENORRHOEA
  4. CRESTOR [Concomitant]
     Dosage: UNK
     Dates: start: 201210
  5. TRICOR [Concomitant]
     Dosage: UNK
     Dates: start: 201210
  6. PRISTIQ [Concomitant]
     Dosage: 50 MG, UNK
     Route: 048
     Dates: start: 201208, end: 201210
  7. ABILIFY [Concomitant]
     Dosage: 2 MG, UNK
     Route: 048
     Dates: start: 201208, end: 201210
  8. ALBUTEROL [Concomitant]
  9. ATROVENT [Concomitant]

REACTIONS (1)
  - Pulmonary embolism [None]
